FAERS Safety Report 7738015-8 (Version None)
Quarter: 2011Q3

REPORT INFORMATION
  Report Type: 
  Country: None (occurrence: None)
  Receive Date: 20110906
  Receipt Date: 20110823
  Transmission Date: 20111222
  Serious: Yes (Hospitalization)
  Sender: FDA-Public Use
  Company Number: 2011HGS-002441

PATIENT
  Age: 52 Year
  Sex: Female
  Weight: 65.318 kg

DRUGS (6)
  1. PLAQUENIL [Concomitant]
  2. COUMADIN [Concomitant]
  3. METHOTREXATE [Concomitant]
  4. BENLYSTA [Suspect]
     Indication: SYSTEMIC LUPUS ERYTHEMATOSUS
     Dosage: 10 MG/KG, 1 IN 14 D, INTRAVENOUS DRIP
     Route: 041
  5. BENLYSTA [Suspect]
     Indication: SYSTEMIC LUPUS ERYTHEMATOSUS
     Dosage: 10 MG/KG, 1 IN 14 D, INTRAVENOUS DRIP
     Route: 041
     Dates: start: 20110531, end: 20110801
  6. PREDNISONE [Concomitant]

REACTIONS (5)
  - PAIN IN EXTREMITY [None]
  - ASTHENIA [None]
  - SPEECH DISORDER [None]
  - DEHYDRATION [None]
  - PAIN [None]
